FAERS Safety Report 8509645-0 (Version None)
Quarter: 2012Q3

REPORT INFORMATION
  Report Type: 
  Country: None (occurrence: None)
  Receive Date: 20120713
  Receipt Date: 20120711
  Transmission Date: 20120928
  Serious: Yes (Other)
  Sender: FDA-Public Use
  Company Number: CHPA2012US013118

PATIENT
  Age: 38 Year
  Sex: Male

DRUGS (6)
  1. KETOCONAZOLE [Concomitant]
  2. AMOXICILLIN [Concomitant]
     Indication: WISDOM TEETH REMOVAL
  3. VOLTAREN [Suspect]
     Indication: NECK PAIN
     Dosage: UNK, UNK
     Route: 061
     Dates: start: 20110101
  4. DRUG THERAPY NOS [Concomitant]
  5. NAPROXEN [Concomitant]
  6. BEN GAY [Concomitant]

REACTIONS (8)
  - DRUG ADMINISTERED AT INAPPROPRIATE SITE [None]
  - ONYCHOMYCOSIS [None]
  - NERVOUSNESS [None]
  - THERAPEUTIC RESPONSE UNEXPECTED [None]
  - TOOTH INFECTION [None]
  - TINEA PEDIS [None]
  - BACTERIAL INFECTION [None]
  - DRUG INEFFECTIVE FOR UNAPPROVED INDICATION [None]
